FAERS Safety Report 12476213 (Version 3)
Quarter: 2016Q3

REPORT INFORMATION
  Report Type: Spontaneous
  Country: US (occurrence: US)
  Receive Date: 20160617
  Receipt Date: 20160913
  Transmission Date: 20161109
  Serious: No
  Sender: FDA-Public Use
  Company Number: US-PFIZER INC-2016293775

PATIENT
  Age: 50 Year
  Sex: Female
  Weight: 59.87 kg

DRUGS (21)
  1. AMITRIPTYLINE [Concomitant]
     Active Substance: AMITRIPTYLINE
     Dosage: 75 MG, 1X/DAY, AT BEDTIME
     Route: 048
     Dates: start: 201604
  2. OXYCODONE-ACETAMINOPHEN [Concomitant]
     Active Substance: ACETAMINOPHEN\OXYCODONE HYDROCHLORIDE
     Indication: PAIN
     Dosage: UNK
     Dates: start: 201602
  3. LACTULOSE. [Concomitant]
     Active Substance: LACTULOSE
     Dosage: UNK
     Route: 048
     Dates: start: 201401
  4. LYRICA [Suspect]
     Active Substance: PREGABALIN
     Indication: NEUROPATHY PERIPHERAL
     Dosage: 150 MG, 3X/DAY
     Route: 048
     Dates: start: 201201, end: 201605
  5. LYRICA [Suspect]
     Active Substance: PREGABALIN
     Dosage: UNK (150X3)
     Route: 048
     Dates: start: 20140130
  6. HYDROMORPHONE [Concomitant]
     Active Substance: HYDROMORPHONE
     Indication: PAIN
     Dosage: UNK
     Dates: start: 201509
  7. AMITRIPTYLINE [Concomitant]
     Active Substance: AMITRIPTYLINE
     Indication: INSOMNIA
     Dosage: UNK
     Dates: start: 201509
  8. LYRICA [Suspect]
     Active Substance: PREGABALIN
     Dosage: 150 MG, 2X/DAY
     Route: 048
     Dates: start: 20160516
  9. METFORMIN [Concomitant]
     Active Substance: METFORMIN HYDROCHLORIDE
     Dosage: UNK
     Route: 048
     Dates: start: 201406
  10. OXYCODONE-ACETAMINOPHEN [Concomitant]
     Active Substance: ACETAMINOPHEN\OXYCODONE HYDROCHLORIDE
     Dosage: [OXYCODONE 5MG]/[PARACETAMOL 325 MG], AS NEEDED
     Route: 048
     Dates: start: 201604
  11. B12 COMPLEX [Concomitant]
     Indication: ENERGY INCREASED
     Dosage: 1 DF LIQUID CAPSULE, 1X/DAY
     Route: 048
     Dates: start: 201301
  12. GLIPIZIDE. [Concomitant]
     Active Substance: GLIPIZIDE
     Indication: DIABETES MELLITUS
     Dosage: 2 DF, 1X/DAY, IN THE MORNING
     Route: 048
     Dates: start: 2013
  13. METFORMIN [Concomitant]
     Active Substance: METFORMIN HYDROCHLORIDE
     Indication: DIABETES MELLITUS
     Dosage: 1 DF, 2X/DAY,  IN THE MORNING AND 1 TABLET AT NIGHT
     Route: 048
     Dates: start: 2013
  14. B12 COMPLEX [Concomitant]
     Indication: VITAMIN B12 DEFICIENCY
     Dosage: UNK
     Dates: start: 199807
  15. CENTRUM SILVER [Concomitant]
     Active Substance: MINERALS\VITAMINS
     Dosage: 1 DF, 1X/DAY, IN THE MORNING DAILY
     Route: 048
     Dates: start: 201301
  16. ATENOLOL. [Concomitant]
     Active Substance: ATENOLOL
     Indication: HYPERTENSION
     Dosage: UNK
     Dates: start: 199807
  17. ATENOLOL. [Concomitant]
     Active Substance: ATENOLOL
     Dosage: 2 MG, 1X/DAY, EVERY MORNING
     Route: 048
     Dates: start: 1999
  18. GLIPIZIDE. [Concomitant]
     Active Substance: GLIPIZIDE
     Dosage: UNK
     Dates: start: 201406
  19. LACTULOSE. [Concomitant]
     Active Substance: LACTULOSE
     Indication: AMMONIA ABNORMAL
     Dosage: 2 DF, 3X/DAY, 2 TABLESPOONS IN MORNING, IN AFTERNOON AND AT NIGHT
     Route: 048
     Dates: start: 201301
  20. HYDROMORPHONE [Concomitant]
     Active Substance: HYDROMORPHONE
     Dosage: 1 MG, 1X/DAY
     Route: 048
     Dates: start: 201604
  21. CENTRUM SILVER [Concomitant]
     Active Substance: MINERALS\VITAMINS
     Indication: VITAMIN SUPPLEMENTATION
     Dosage: UNK
     Dates: start: 199807

REACTIONS (2)
  - Intentional product use issue [Not Recovered/Not Resolved]
  - Drug effect incomplete [Not Recovered/Not Resolved]

NARRATIVE: CASE EVENT DATE: 201312
